FAERS Safety Report 7289116-2 (Version None)
Quarter: 2011Q1

REPORT INFORMATION
  Report Type: 
  Country: None (occurrence: None)
  Receive Date: 20110201
  Receipt Date: 20110118
  Transmission Date: 20110831
  Serious: Yes (Death)
  Sender: FDA-Public Use
  Company Number: KV200900809

PATIENT
  Age: 52 Year
  Sex: Male
  Weight: 103.4 kg

DRUGS (17)
  1. CADUET [Concomitant]
  2. FUROSEMIDE [Concomitant]
  3. AMLODIPINE BESYLATE [Concomitant]
  4. FLOMAC /00889901 (MORNIFLUMATE) [Concomitant]
  5. METOPROLOL TARTRATE [Concomitant]
  6. ISOSORBIDE MONONITRATE [Suspect]
     Indication: BLOOD PRESSURE
     Dosage: 30 MG, QD, ORAL
     Route: 048
     Dates: start: 20070919, end: 20080921
  7. GLUPIZIDE (GLIPIZIDE) [Concomitant]
  8. SPIRONOLACTONE [Concomitant]
  9. ZOLPIDEM [Concomitant]
  10. ASPIRIN [Concomitant]
  11. NASACORT [Concomitant]
  12. VERAPAMIL [Concomitant]
  13. CELEXA [Concomitant]
  14. PLAVIX [Concomitant]
  15. COMBIVENT /01220701/ (IPRATROPIUM BROMIDE, SALBUTAMOL) [Concomitant]
  16. KLOR-CON [Concomitant]
  17. LISINOPRIL [Concomitant]

REACTIONS (18)
  - CORONARY ARTERY DISEASE [None]
  - UNRESPONSIVE TO STIMULI [None]
  - OVERWEIGHT [None]
  - ARRHYTHMIA [None]
  - HEAD INJURY [None]
  - AGITATION [None]
  - NAUSEA [None]
  - OEDEMA PERIPHERAL [None]
  - CARDIAC ARREST [None]
  - DEPRESSION [None]
  - INSOMNIA [None]
  - DIABETES MELLITUS [None]
  - FURUNCLE [None]
  - ECONOMIC PROBLEM [None]
  - ANXIETY [None]
  - ANAESTHETIC COMPLICATION [None]
  - APNOEA [None]
  - ROAD TRAFFIC ACCIDENT [None]
